FAERS Safety Report 23789776 (Version 3)
Quarter: 2024Q2

REPORT INFORMATION
  Report Type: Spontaneous
  Country: US (occurrence: US)
  Receive Date: 20240426
  Receipt Date: 20240612
  Transmission Date: 20240716
  Serious: No
  Sender: FDA-Public Use
  Company Number: US-INCYTE CORPORATION-2024IN004218

PATIENT

DRUGS (5)
  1. JAKAFI [Suspect]
     Active Substance: RUXOLITINIB
     Indication: Polycythaemia vera
     Dosage: 10 MILLIGRAM, BID (TAKE 1 TABLET 10 MG TOTAL BY MOUTH 2 TIMES A DAY TAKE ABOUT THE SAME TIME EACH DA
     Route: 048
     Dates: start: 20240401
  2. JAKAFI [Suspect]
     Active Substance: RUXOLITINIB
     Dosage: 15 MILLIGRAM, BID (TAKE AT ABOUT SAME TIME EACH DAY. TAKE WITH OR WITHOUT FOOD)
     Route: 048
     Dates: start: 20240511
  3. CLARITIN [Concomitant]
     Active Substance: LORATADINE
     Indication: Product used for unknown indication
     Dosage: 10 MILLIGRAM
     Route: 065
  4. TYLENOL [Concomitant]
     Active Substance: ACETAMINOPHEN
     Indication: Product used for unknown indication
     Dosage: 500 MILLIGRAM
     Route: 065
  5. LIPITOR [Concomitant]
     Active Substance: ATORVASTATIN CALCIUM
     Indication: Product used for unknown indication
     Dosage: 20 MILLIGRAM
     Route: 065

REACTIONS (9)
  - Fatigue [Unknown]
  - Pruritus [Unknown]
  - Myalgia [Unknown]
  - Pain [Unknown]
  - Insomnia [Unknown]
  - Bone pain [Unknown]
  - Dizziness [Unknown]
  - Dyspnoea [Unknown]
  - Weight increased [Unknown]
